FAERS Safety Report 11813855 (Version 2)
Quarter: 2015Q4

REPORT INFORMATION
  Report Type: Spontaneous
  Country: US (occurrence: US)
  Receive Date: 20151209
  Receipt Date: 20151231
  Transmission Date: 20160305
  Serious: No
  Sender: FDA-Public Use
  Company Number: US-PFIZER INC-2015434147

PATIENT
  Age: 30 Year
  Sex: Female
  Weight: 61.23 kg

DRUGS (1)
  1. ZOLOFT [Suspect]
     Active Substance: SERTRALINE HYDROCHLORIDE
     Indication: POSTPARTUM DEPRESSION
     Dosage: UNK

REACTIONS (3)
  - Headache [Unknown]
  - Urinary tract infection [Unknown]
  - Hypotension [Unknown]
